FAERS Safety Report 8844946 (Version 1)
Quarter: 2012Q4

REPORT INFORMATION
  Report Type: Spontaneous
  Country: US (occurrence: None)
  Receive Date: 20121002
  Receipt Date: 20121002
  Transmission Date: 20130627
  Serious: Yes (Hospitalization, Other)
  Sender: FDA-Public Use
  Company Number: RB-42563-2012

PATIENT
  Sex: Male
  Weight: 3.2 kg

DRUGS (3)
  1. SUBOXONE [Suspect]
     Indication: DRUG DEPENDENCE
     Route: 064
     Dates: start: 201108
  2. SUBOXONE [Suspect]
     Indication: DRUG DEPENDENCE
     Route: 064
     Dates: start: 2012, end: 20120506
  3. NICOTINE [Suspect]
     Indication: DRUG DEPENDENCE
     Dosage: 3-4 cigarettes daily transplacental
     Route: 064
     Dates: start: 201108, end: 20120506

REACTIONS (2)
  - Drug withdrawal syndrome neonatal [None]
  - Foetal exposure during pregnancy [None]
